FAERS Safety Report 23571986 (Version 10)
Quarter: 2024Q4

REPORT INFORMATION
  Report Type: Spontaneous
  Country: DE (occurrence: DE)
  Receive Date: 20240227
  Receipt Date: 20241230
  Transmission Date: 20250114
  Serious: Yes (Other)
  Sender: NOVARTIS
  Company Number: DE-ROCHE-3492934

PATIENT
  Age: 33 Year
  Sex: Male

DRUGS (5)
  1. KESIMPTA [Suspect]
     Active Substance: OFATUMUMAB
     Indication: Product used for unknown indication
     Dosage: UNK
     Route: 065
  2. CORTISONE [Suspect]
     Active Substance: CORTISONE
     Indication: Product used for unknown indication
     Dosage: UNK
     Route: 065
  3. OCREVUS [Suspect]
     Active Substance: OCRELIZUMAB
     Indication: Multiple sclerosis
     Dosage: UNK
     Route: 065
  4. OCREVUS [Suspect]
     Active Substance: OCRELIZUMAB
     Indication: Secondary progressive multiple sclerosis
  5. OZANIMOD [Concomitant]
     Active Substance: OZANIMOD
     Indication: Product used for unknown indication
     Dosage: UNK
     Route: 065

REACTIONS (26)
  - Multiple sclerosis relapse [Unknown]
  - Multiple sclerosis [Unknown]
  - Immunodeficiency [Unknown]
  - Paranoia [Unknown]
  - Depression [Unknown]
  - Aggression [Unknown]
  - Insomnia [Unknown]
  - Mood swings [Unknown]
  - Tremor [Unknown]
  - Bone pain [Unknown]
  - Alopecia [Unknown]
  - B-lymphocyte count decreased [Unknown]
  - Lhermitte^s sign [Unknown]
  - Bronchitis [Unknown]
  - Insomnia [Unknown]
  - Peroneal nerve palsy [Unknown]
  - Arthropathy [Recovering/Resolving]
  - Nasopharyngitis [Unknown]
  - Myopia [Unknown]
  - Fatigue [Recovered/Resolved]
  - Gait disturbance [Recovering/Resolving]
  - Disturbance in attention [Unknown]
  - Overdose [Unknown]
  - Drug ineffective [Unknown]
  - Therapeutic response decreased [Unknown]
  - Off label use [Unknown]

NARRATIVE: CASE EVENT DATE: 20230401
